FAERS Safety Report 5308164-2 (Version None)
Quarter: 2007Q2

REPORT INFORMATION
  Report Type: 
  Country: None (occurrence: None)
  Receive Date: 20070423
  Receipt Date: 20070423
  Transmission Date: 20071010
  Serious: Yes (Hospitalization)
  Sender: FDA-Public Use
  Company Number: None

PATIENT
  Age: 23 Year
  Sex: Male
  Weight: 122.9 kg

DRUGS (1)
  1. VANCOMYCIN [Suspect]
     Indication: OSTEOMYELITIS
     Dosage: 2000MG   Q12H   IV   (16 DOSES)
     Route: 042
     Dates: start: 20070404, end: 20070411

REACTIONS (1)
  - BLOOD CREATININE INCREASED [None]
